FAERS Safety Report 5752081-0 (Version None)
Quarter: 2008Q2

REPORT INFORMATION
  Report Type: 
  Country: None (occurrence: None)
  Receive Date: 20080529
  Receipt Date: 20080523
  Transmission Date: 20081010
  Serious: Yes (Hospitalization)
  Sender: FDA-Public Use
  Company Number: US-BRISTOL-MYERS SQUIBB COMPANY-14171458

PATIENT
  Age: 43 Year
  Sex: Male
  Weight: 96 kg

DRUGS (3)
  1. ERBITUX [Suspect]
     Indication: TONGUE NEOPLASM MALIGNANT STAGE UNSPECIFIED
     Dosage: LAST DOSE ON 21-APR-2008.
     Dates: start: 20080310, end: 20080310
  2. CISPLATIN [Suspect]
     Indication: TONGUE NEOPLASM MALIGNANT STAGE UNSPECIFIED
     Dosage: FIRST DOSE 10-MAR-08
     Dates: start: 20080407, end: 20080407
  3. RADIATION THERAPY [Suspect]
     Indication: TONGUE NEOPLASM MALIGNANT STAGE UNSPECIFIED
     Dosage: 1 DOSAGE FORM = 6000CGY EXTERNAL BEAM,IMRT IN 29FRACTIONS,35DAYS.LAST RADIATION 21APR08
     Dates: start: 20080310, end: 20080310

REACTIONS (3)
  - NAUSEA [None]
  - OESOPHAGITIS [None]
  - VOMITING [None]
